FAERS Safety Report 11324165 (Version 1)
Quarter: 2015Q3

REPORT INFORMATION
  Report Type: Spontaneous
  Country: DE (occurrence: DE)
  Receive Date: 20150730
  Receipt Date: 20150730
  Transmission Date: 20151125
  Serious: Yes (Death, Other)
  Sender: FDA-Public Use
  Company Number: DE-PFIZER INC-2015251379

PATIENT
  Age: 38 Year
  Sex: Male

DRUGS (2)
  1. FENTANYL. [Suspect]
     Active Substance: FENTANYL
     Dosage: UNK
  2. LYRICA [Suspect]
     Active Substance: PREGABALIN
     Dosage: UNK

REACTIONS (4)
  - Depressed level of consciousness [Fatal]
  - Cardiac disorder [Fatal]
  - Aspiration [Fatal]
  - Vomiting [Fatal]
